FAERS Safety Report 26001492 (Version 1)
Quarter: 2025Q4

REPORT INFORMATION
  Report Type: Spontaneous
  Country: US (occurrence: US)
  Receive Date: 20251105
  Receipt Date: 20251105
  Transmission Date: 20260118
  Serious: Yes (Other)
  Sender: ABBVIE
  Company Number: US-ABBVIE-6532376

PATIENT
  Sex: Female

DRUGS (1)
  1. DALVANCE [Suspect]
     Active Substance: DALBAVANCIN HYDROCHLORIDE
     Indication: Product used for unknown indication
     Dosage: UNKNOWN, LAST ADMIN DATE: OCT 2025
     Route: 042
     Dates: start: 20251022

REACTIONS (5)
  - Anaphylactic reaction [Unknown]
  - Dyspnoea [Recovered/Resolved]
  - Throat irritation [Unknown]
  - Urticaria [Unknown]
  - Pruritus [Unknown]

NARRATIVE: CASE EVENT DATE: 20251022
